FAERS Safety Report 23006059 (Version 2)
Quarter: 2024Q1

REPORT INFORMATION
  Report Type: Spontaneous
  Country: US (occurrence: US)
  Receive Date: 20230929
  Receipt Date: 20240322
  Transmission Date: 20240410
  Serious: No
  Sender: FDA-Public Use
  Company Number: US-ASCENDIS PHARMA-2023US002846

PATIENT

DRUGS (2)
  1. SKYTROFA [Suspect]
     Active Substance: LONAPEGSOMATROPIN-TCGD
     Indication: Growth hormone deficiency
     Dosage: 9.1 MILLIGRAM, WEEKLY
     Route: 058
  2. IRON [Suspect]
     Active Substance: IRON
     Indication: Iron deficiency
     Dosage: ^A GIGANTIC DOSE^

REACTIONS (3)
  - Weight increased [Unknown]
  - Skin striae [Not Recovered/Not Resolved]
  - Constipation [Unknown]
